FAERS Safety Report 19619671 (Version 1)
Quarter: 2021Q3

REPORT INFORMATION
  Report Type: Spontaneous
  Country: US (occurrence: US)
  Receive Date: 20210728
  Receipt Date: 20210728
  Transmission Date: 20211014
  Serious: Yes (Other)
  Sender: FDA-Public Use
  Company Number: US-ROCHE-2755195

PATIENT
  Sex: Female

DRUGS (3)
  1. XELODA [Suspect]
     Active Substance: CAPECITABINE
     Indication: PRODUCT USED FOR UNKNOWN INDICATION
     Route: 048
  2. TUKYSA [Suspect]
     Active Substance: TUCATINIB
     Indication: BREAST CANCER FEMALE
     Route: 065
  3. HERCEPTIN [Suspect]
     Active Substance: TRASTUZUMAB
     Indication: PRODUCT USED FOR UNKNOWN INDICATION
     Route: 065

REACTIONS (10)
  - Tremor [Unknown]
  - Sneezing [Unknown]
  - Fatigue [Unknown]
  - Rhinorrhoea [Unknown]
  - Diarrhoea [Unknown]
  - Paraesthesia [Unknown]
  - Cardiac disorder [Unknown]
  - Thrombosis [Unknown]
  - Hypoaesthesia [Unknown]
  - Cough [Unknown]
